FAERS Safety Report 18022002 (Version 3)
Quarter: 2020Q3

REPORT INFORMATION
  Report Type: Spontaneous
  Country: US (occurrence: US)
  Receive Date: 20200714
  Receipt Date: 20200829
  Transmission Date: 20201103
  Serious: Yes (Other)
  Sender: FDA-Public Use
  Company Number: NVSC2020US189665

PATIENT
  Sex: Female

DRUGS (1)
  1. BEOVU [Suspect]
     Active Substance: BROLUCIZUMAB-DBLL
     Indication: NEOVASCULAR AGE-RELATED MACULAR DEGENERATION
     Dosage: 6 MG (INTO EYES)
     Route: 047
     Dates: start: 20200415

REACTIONS (3)
  - Vitritis [Recovering/Resolving]
  - Blindness transient [Recovering/Resolving]
  - Non-infectious endophthalmitis [Recovering/Resolving]
